FAERS Safety Report 6349573-2 (Version None)
Quarter: 2009Q3

REPORT INFORMATION
  Report Type: 
  Country: None (occurrence: None)
  Receive Date: 20090911
  Receipt Date: 20090831
  Transmission Date: 20100115
  Serious: Yes (Other)
  Sender: FDA-Public Use
  Company Number: FI-ELI_LILLY_AND_COMPANY-FI200908001822

PATIENT
  Sex: Female

DRUGS (6)
  1. YENTREVE [Suspect]
     Indication: INCONTINENCE
     Dosage: 40 MG, 2/D
     Route: 065
     Dates: start: 20090201, end: 20090805
  2. CITALOPRAM HYDROBROMIDE [Interacting]
     Indication: DEPRESSION
     Dosage: 30 MG, DAILY (1/D)
     Route: 048
     Dates: start: 20090101
  3. ABILIFY [Concomitant]
     Indication: PSYCHOTIC DISORDER
     Dosage: 30 MG, DAILY (1/D)
     Route: 048
     Dates: start: 20060101
  4. SEROQUEL [Concomitant]
     Indication: PSYCHOTIC DISORDER
     Dosage: 400 MG, DAILY (1/D)
     Route: 048
     Dates: start: 20080101
  5. SEROQUEL [Concomitant]
     Dosage: 600 MG, DAILY (1/D)
     Route: 048
     Dates: start: 20080101
  6. LAMICTAL [Concomitant]
     Indication: MOOD SWINGS
     Dosage: 200 MG, 2/D
     Route: 048
     Dates: start: 20060101

REACTIONS (4)
  - ANXIETY [None]
  - DRUG INTERACTION [None]
  - NIGHTMARE [None]
  - PANIC ATTACK [None]
